FAERS Safety Report 17731330 (Version 4)
Quarter: 2020Q4

REPORT INFORMATION
  Report Type: Spontaneous
  Country: US (occurrence: US)
  Receive Date: 20200430
  Receipt Date: 20201229
  Transmission Date: 20210113
  Serious: Yes (Hospitalization)
  Sender: FDA-Public Use
  Company Number: US-AKCEA THERAPEUTICS-2020IS001126

PATIENT
  Age: 75 Year
  Sex: Female
  Weight: 80.5 kg

DRUGS (28)
  1. TYLENOL EXTRA STRENGTH [Concomitant]
     Active Substance: ACETAMINOPHEN
     Route: 048
  2. TEGSEDI [Suspect]
     Active Substance: INOTERSEN SODIUM
     Indication: HEREDITARY NEUROPATHIC AMYLOIDOSIS
     Route: 058
     Dates: start: 20190822
  3. ISSD (INTEGRATED SYRINGE SAFETY DEVICE) [Suspect]
     Active Substance: DEVICE
  4. PANTOPRAZOLE [Concomitant]
     Active Substance: PANTOPRAZOLE
     Route: 048
  5. ASPIRIN /00002701/ [Concomitant]
     Active Substance: ASPIRIN
     Route: 048
  6. SPIRONOLACTONE. [Concomitant]
     Active Substance: SPIRONOLACTONE
     Route: 048
  7. TEGSEDI [Suspect]
     Active Substance: INOTERSEN SODIUM
     Route: 058
  8. POTASSIUM CHLORIDE. [Concomitant]
     Active Substance: POTASSIUM CHLORIDE
     Route: 065
  9. BREO ELLIPTA [Concomitant]
     Active Substance: FLUTICASONE FUROATE\VILANTEROL TRIFENATATE
     Route: 055
  10. PROAIR HFA [Concomitant]
     Active Substance: ALBUTEROL SULFATE
     Route: 055
  11. FUROSEMIDE. [Concomitant]
     Active Substance: FUROSEMIDE
     Route: 048
  12. VITAMIN E /00110501/ [Concomitant]
     Active Substance: TOCOPHEROL
     Route: 048
  13. LEVOTHYROXINE. [Concomitant]
     Active Substance: LEVOTHYROXINE
     Route: 048
  14. SINGULAIR [Concomitant]
     Active Substance: MONTELUKAST SODIUM
     Route: 048
  15. CLOPIDOGREL [Concomitant]
     Active Substance: CLOPIDOGREL BISULFATE
     Route: 048
  16. METOPROLOL. [Concomitant]
     Active Substance: METOPROLOL
     Route: 048
  17. LOSARTAN. [Concomitant]
     Active Substance: LOSARTAN
     Route: 048
  18. VICTOZA [Concomitant]
     Active Substance: LIRAGLUTIDE
     Route: 065
  19. HYDRALAZINE [Concomitant]
     Active Substance: HYDRALAZINE HYDROCHLORIDE
     Route: 048
  20. REPATHA [Concomitant]
     Active Substance: EVOLOCUMAB
     Route: 058
  21. VITAMIN A /00056001/ [Concomitant]
     Active Substance: RETINOL
     Route: 065
  22. CLONIDINE. [Concomitant]
     Active Substance: CLONIDINE
     Route: 048
  23. VITAMIN B12 [Concomitant]
     Active Substance: CYANOCOBALAMIN
     Route: 060
  24. TRAZODONE [Concomitant]
     Active Substance: TRAZODONE HYDROCHLORIDE
     Route: 048
  25. LATANOPROST. [Concomitant]
     Active Substance: LATANOPROST
     Route: 047
  26. VITAMIN D3 [Concomitant]
     Active Substance: CHOLECALCIFEROL
     Route: 048
  27. FISH OIL [Concomitant]
     Active Substance: FISH OIL
     Route: 048
  28. HUMULIN NOS [Concomitant]
     Active Substance: INSULIN HUMAN
     Route: 058

REACTIONS (27)
  - Haemorrhage [Unknown]
  - Weight decreased [Not Recovered/Not Resolved]
  - Joint stiffness [Not Recovered/Not Resolved]
  - Blood creatinine abnormal [Unknown]
  - Protein urine present [Unknown]
  - Neuropathy peripheral [Not Recovered/Not Resolved]
  - Dizziness [Not Recovered/Not Resolved]
  - Gait disturbance [Not Recovered/Not Resolved]
  - Crystal urine present [Unknown]
  - Palpitations [Unknown]
  - Urine abnormality [Unknown]
  - Glomerular filtration rate decreased [Unknown]
  - Constipation [Not Recovered/Not Resolved]
  - Coating in mouth [Unknown]
  - Tongue coated [Unknown]
  - Urinary casts [Unknown]
  - Blood pressure increased [Unknown]
  - Oedema peripheral [Unknown]
  - Platelet count decreased [Unknown]
  - Nitrite urine present [Unknown]
  - Dry mouth [Not Recovered/Not Resolved]
  - Urine protein/creatinine ratio increased [Unknown]
  - Decreased appetite [Not Recovered/Not Resolved]
  - Anxiety [Unknown]
  - Neuralgia [Not Recovered/Not Resolved]
  - Urinary sediment present [Unknown]
  - Bacterial test positive [Unknown]

NARRATIVE: CASE EVENT DATE: 2020
